FAERS Safety Report 20482261 (Version 1)
Quarter: 2022Q1

REPORT INFORMATION
  Report Type: Spontaneous
  Country: NL (occurrence: NL)
  Receive Date: 20220216
  Receipt Date: 20220216
  Transmission Date: 20220424
  Serious: Yes (Other)
  Sender: FDA-Public Use
  Company Number: NL-LRB-00784763

PATIENT
  Sex: Male
  Weight: 103 kg

DRUGS (4)
  1. ATORVASTATIN [Suspect]
     Active Substance: ATORVASTATIN
     Indication: Hypercholesterolaemia
     Dosage: 20 MILLIGRAM, DAILY 1D1T, TABLET
     Route: 065
     Dates: start: 20180926, end: 20190920
  2. AMLODIPINE BESYLATE\PERINDOPRIL ERBUMINE [Suspect]
     Active Substance: AMLODIPINE BESYLATE\PERINDOPRIL ERBUMINE
     Indication: Hypertension
     Dosage: 1 DOSAGE FORM, DAILY 1D1T
     Route: 065
     Dates: start: 20181003
  3. CLOPIDOGREL [Concomitant]
     Active Substance: CLOPIDOGREL BISULFATE
     Indication: Product used for unknown indication
     Dosage: TABLET, 75 MG (MILLIGRAM) ()
     Route: 065
  4. METFORMINE TABLET   500MG / Brand name not specifiedMETFORMINE TABL... [Concomitant]
     Indication: Product used for unknown indication
     Dosage: TABLET, 500 MG (MILLIGRAM) ()
     Route: 065

REACTIONS (1)
  - Erectile dysfunction [Recovered/Resolved]
